FAERS Safety Report 21035833 (Version 1)
Quarter: 2022Q3

REPORT INFORMATION
  Report Type: Spontaneous
  Country: US (occurrence: US)
  Receive Date: 20220701
  Receipt Date: 20220701
  Transmission Date: 20221027
  Serious: No
  Sender: FDA-Public Use
  Company Number: US-SANOFI-01163051

PATIENT
  Sex: Male

DRUGS (2)
  1. XYZAL [Suspect]
     Active Substance: LEVOCETIRIZINE DIHYDROCHLORIDE
     Indication: Sinus disorder
     Dosage: UNK
     Route: 065
  2. ACETAMINOPHEN [Concomitant]
     Active Substance: ACETAMINOPHEN
     Indication: Sinus disorder
     Dosage: 1 DF, QD
     Route: 065

REACTIONS (4)
  - Sinus disorder [Unknown]
  - Condition aggravated [Unknown]
  - Malaise [Unknown]
  - Bradyphrenia [Not Recovered/Not Resolved]
